FAERS Safety Report 10051219 (Version 5)
Quarter: 2014Q4

REPORT INFORMATION
  Report Type: Report from Study
  Country: FR (occurrence: FR)
  Receive Date: 20140401
  Receipt Date: 20141021
  Transmission Date: 20150528
  Serious: Yes (Other)
  Sender: FDA-Public Use
  Company Number: FR-TEVA-472510USA

PATIENT
  Age: 78 Year
  Sex: Male

DRUGS (65)
  1. RITUXIMAB [Suspect]
     Active Substance: RITUXIMAB
     Route: 058
     Dates: start: 20130327
  2. RITUXIMAB [Suspect]
     Active Substance: RITUXIMAB
     Route: 058
     Dates: start: 20130612
  3. RITUXIMAB [Suspect]
     Active Substance: RITUXIMAB
     Dosage: 1400 MG UNKNOWN FREQ
     Route: 058
     Dates: start: 20140210
  4. GRANOCYTE [Concomitant]
     Active Substance: LENOGRASTIM
     Route: 065
     Dates: start: 20130912, end: 20130913
  5. POLARAMINE [Concomitant]
     Active Substance: DEXCHLORPHENIRAMINE MALEATE
     Route: 065
     Dates: start: 20121128
  6. METHYLPREDNISOLONE. [Concomitant]
     Active Substance: METHYLPREDNISOLONE
     Route: 065
     Dates: start: 20121128
  7. MOMETASONE FUROATE. [Concomitant]
     Active Substance: MOMETASONE FUROATE
     Indication: RHINITIS ALLERGIC
     Route: 065
     Dates: start: 20140428, end: 20140528
  8. BENDAMUSTINE [Suspect]
     Active Substance: BENDAMUSTINE
     Indication: B-CELL LYMPHOMA
     Route: 065
     Dates: start: 20121003, end: 20121004
  9. BENDAMUSTINE [Suspect]
     Active Substance: BENDAMUSTINE
     Route: 065
     Dates: start: 20121226, end: 20121227
  10. BENDAMUSTINE [Suspect]
     Active Substance: BENDAMUSTINE
     Route: 065
     Dates: start: 20130130, end: 20130131
  11. RITUXIMAB [Suspect]
     Active Substance: RITUXIMAB
     Route: 058
     Dates: start: 20130424
  12. VALACICLOVIR [Concomitant]
     Active Substance: VALACYCLOVIR HYDROCHLORIDE
     Indication: PRODUCT USED FOR UNKNOWN INDICATION
     Route: 065
     Dates: start: 20121003, end: 20140313
  13. GRANOCYTE [Concomitant]
     Active Substance: LENOGRASTIM
     Route: 065
     Dates: start: 20130701, end: 20130702
  14. GRANOCYTE [Concomitant]
     Active Substance: LENOGRASTIM
     Route: 065
     Dates: start: 20130823, end: 20130825
  15. CARBOCISTEINE [Concomitant]
     Active Substance: CARBOCYSTEINE
     Indication: PRODUCT USED FOR UNKNOWN INDICATION
     Route: 065
     Dates: start: 20121008, end: 20121015
  16. LENOGRASTIM [Concomitant]
     Active Substance: LENOGRASTIM
     Indication: NEUTROPHIL COUNT DECREASED
     Route: 065
     Dates: start: 20140331, end: 20140404
  17. PEGFILGRASTIM [Concomitant]
     Active Substance: PEGFILGRASTIM
     Indication: NEUTROPHIL COUNT DECREASED
     Route: 065
     Dates: start: 20140423, end: 20140423
  18. BENDAMUSTINE [Suspect]
     Active Substance: BENDAMUSTINE
     Route: 065
     Dates: start: 20130227, end: 20130228
  19. RITUXIMAB [Suspect]
     Active Substance: RITUXIMAB
     Route: 058
     Dates: start: 20131216
  20. RITUXIMAB [Suspect]
     Active Substance: RITUXIMAB
     Dosage: 1400 MG UNKNOWN FREQ.
     Route: 058
     Dates: start: 20140407, end: 20140728
  21. GRANOCYTE [Concomitant]
     Active Substance: LENOGRASTIM
     Route: 065
     Dates: start: 20130819, end: 20130821
  22. GRANOCYTE [Concomitant]
     Active Substance: LENOGRASTIM
     Route: 065
     Dates: start: 20131011, end: 20131012
  23. GRANOCYTE [Concomitant]
     Active Substance: LENOGRASTIM
     Route: 065
     Dates: start: 20130207, end: 20130210
  24. GRANOCYTE [Concomitant]
     Active Substance: LENOGRASTIM
     Route: 065
     Dates: start: 20130306, end: 20130309
  25. GRANOCYTE [Concomitant]
     Active Substance: LENOGRASTIM
     Route: 065
     Dates: start: 20130729, end: 20130730
  26. PARACETAMOL [Concomitant]
     Active Substance: ACETAMINOPHEN
     Dosage: 3 G UNKNOWN FREQ
     Route: 065
     Dates: start: 20140910, end: 20140912
  27. PEGFILGRASTIM [Concomitant]
     Active Substance: PEGFILGRASTIM
     Route: 065
     Dates: start: 20140526, end: 20140526
  28. FOLIC ACID. [Concomitant]
     Active Substance: FOLIC ACID
     Indication: PRODUCT USED FOR UNKNOWN INDICATION
     Route: 065
     Dates: start: 20121003
  29. BENDAMUSTINE [Suspect]
     Active Substance: BENDAMUSTINE
     Route: 065
     Dates: start: 20121128, end: 20121129
  30. RITUXIMAB [Suspect]
     Active Substance: RITUXIMAB
     Indication: B-CELL LYMPHOMA
     Route: 042
     Dates: start: 20121030, end: 20121030
  31. GRANOCYTE [Concomitant]
     Active Substance: LENOGRASTIM
     Route: 065
     Dates: start: 20130627, end: 20130629
  32. GRANOCYTE [Concomitant]
     Active Substance: LENOGRASTIM
     Route: 065
     Dates: start: 20130411, end: 20130414
  33. GRANOCYTE [Concomitant]
     Active Substance: LENOGRASTIM
     Route: 065
     Dates: start: 20130527, end: 20130530
  34. PARACETAMOL [Concomitant]
     Active Substance: ACETAMINOPHEN
     Route: 065
     Dates: start: 20131104, end: 20131105
  35. DEXAMETHASONE. [Concomitant]
     Active Substance: DEXAMETHASONE
     Indication: PRODUCT USED FOR UNKNOWN INDICATION
     Route: 065
     Dates: start: 20121003
  36. ONDANSETRON [Concomitant]
     Active Substance: ONDANSETRON
     Indication: PRODUCT USED FOR UNKNOWN INDICATION
     Route: 065
     Dates: start: 20121003
  37. CEFPODOXIME PROXETIL. [Concomitant]
     Active Substance: CEFPODOXIME PROXETIL
     Indication: PRODUCT USED FOR UNKNOWN INDICATION
     Route: 065
     Dates: start: 20121030, end: 20121105
  38. BENDAMUSTINE [Suspect]
     Active Substance: BENDAMUSTINE
  39. RITUXIMAB [Suspect]
     Active Substance: RITUXIMAB
     Indication: B-CELL LYMPHOMA
     Route: 042
     Dates: start: 20121003
  40. RITUXIMAB [Suspect]
     Active Substance: RITUXIMAB
     Route: 058
     Dates: start: 20130227
  41. GRANOCYTE [Concomitant]
     Active Substance: LENOGRASTIM
     Indication: PRODUCT USED FOR UNKNOWN INDICATION
     Route: 065
     Dates: start: 20130121, end: 20130122
  42. GRANOCYTE [Concomitant]
     Active Substance: LENOGRASTIM
     Route: 065
     Dates: start: 20130920, end: 20130921
  43. GRANOCYTE [Concomitant]
     Active Substance: LENOGRASTIM
     Route: 065
     Dates: start: 20131014, end: 20131016
  44. PARACETAMOL [Concomitant]
     Active Substance: ACETAMINOPHEN
     Indication: PRODUCT USED FOR UNKNOWN INDICATION
     Route: 065
     Dates: start: 20121003, end: 20121003
  45. AMOXICILLINE                       /00249602/ [Concomitant]
     Active Substance: AMOXICILLIN
     Indication: PRODUCT USED FOR UNKNOWN INDICATION
     Route: 065
     Dates: start: 20121008, end: 20121015
  46. METHYLPREDNISOLONE. [Concomitant]
     Active Substance: METHYLPREDNISOLONE
     Indication: PRODUCT USED FOR UNKNOWN INDICATION
     Route: 065
     Dates: start: 20121003, end: 20121003
  47. RED BLOOD CELLS [Concomitant]
     Active Substance: HUMAN RED BLOOD CELL
     Indication: PRODUCT USED FOR UNKNOWN INDICATION
     Dosage: 2 PACKS, UNKNOWN FREQ.
     Route: 065
     Dates: start: 20120926, end: 20120926
  48. PEGFILGRASTIM [Concomitant]
     Active Substance: PEGFILGRASTIM
     Route: 065
     Dates: start: 20140624, end: 20140624
  49. PEGFILGRASTIM [Concomitant]
     Active Substance: PEGFILGRASTIM
     Route: 065
     Dates: start: 20140728, end: 20140728
  50. MICARDIS [Concomitant]
     Active Substance: TELMISARTAN
     Indication: PRODUCT USED FOR UNKNOWN INDICATION
     Route: 065
     Dates: start: 20130329
  51. BENDAMUSTINE [Suspect]
     Active Substance: BENDAMUSTINE
     Route: 065
     Dates: start: 20121030, end: 20121031
  52. RITUXIMAB [Suspect]
     Active Substance: RITUXIMAB
     Route: 058
     Dates: start: 20121226
  53. RITUXIMAB [Suspect]
     Active Substance: RITUXIMAB
     Route: 058
     Dates: start: 20130130
  54. RITUXIMAB [Suspect]
     Active Substance: RITUXIMAB
     Route: 058
     Dates: start: 20140210
  55. GRANOCYTE [Concomitant]
     Active Substance: LENOGRASTIM
     Route: 065
     Dates: start: 20130128, end: 20130129
  56. GRANOCYTE [Concomitant]
     Active Substance: LENOGRASTIM
     Route: 065
     Dates: start: 20130725, end: 20130726
  57. BACTRIM [Concomitant]
     Active Substance: SULFAMETHOXAZOLE\TRIMETHOPRIM
     Indication: PRODUCT USED FOR UNKNOWN INDICATION
     Route: 065
     Dates: start: 20121003, end: 20130128
  58. ALPRAZOLAM. [Concomitant]
     Active Substance: ALPRAZOLAM
     Indication: PRODUCT USED FOR UNKNOWN INDICATION
     Dosage: 0.5 MG, UNKNOWN FREQ.
     Route: 065
     Dates: start: 20121003, end: 20121003
  59. POLARAMINE [Concomitant]
     Active Substance: DEXCHLORPHENIRAMINE MALEATE
     Indication: PRODUCT USED FOR UNKNOWN INDICATION
     Route: 065
     Dates: start: 20121003, end: 20121003
  60. BILASTINE [Concomitant]
     Active Substance: BILASTINE
     Indication: RHINITIS ALLERGIC
     Dosage: UNK UNK, UNKNOWN FREQ.
     Route: 065
     Dates: start: 20140428, end: 20140528
  61. AUGMENTIN [Concomitant]
     Active Substance: AMOXICILLIN\CLAVULANATE POTASSIUM
     Indication: PRODUCT USED FOR UNKNOWN INDICATION
     Dosage: UNK UNK, UNKNOWN FREQ.
     Route: 065
  62. RITUXIMAB [Suspect]
     Active Substance: RITUXIMAB
     Route: 058
     Dates: start: 20121128
  63. RITUXIMAB [Suspect]
     Active Substance: RITUXIMAB
     Route: 058
     Dates: start: 20130807
  64. RITUXIMAB [Suspect]
     Active Substance: RITUXIMAB
     Route: 058
     Dates: end: 20131002
  65. PARACETAMOL [Concomitant]
     Active Substance: ACETAMINOPHEN
     Route: 065
     Dates: start: 20131202, end: 20131208

REACTIONS (1)
  - Squamous cell carcinoma [Not Recovered/Not Resolved]

NARRATIVE: CASE EVENT DATE: 20130727
